FAERS Safety Report 8758652 (Version 2)
Quarter: 2012Q4

REPORT INFORMATION
  Report Type: Spontaneous
  Country: IT (occurrence: None)
  Receive Date: 20120814
  Receipt Date: 20120822
  Transmission Date: 20130627
  Serious: Yes (Other)
  Sender: FDA-Public Use
  Company Number: 2012AP002331

PATIENT
  Age: 69 Year
  Sex: Male

DRUGS (7)
  1. QUETIAPINE [Suspect]
     Indication: INSOMNIA
  2. QUETIAPINE [Suspect]
     Indication: OFF LABEL USE
  3. PRAMIPEXOLE [Suspect]
     Indication: PROGRESSIVE SUPRANUCLEAR PALSY
  4. CARBIDOPA AND LEVODOPA [Concomitant]
     Indication: PARKINSONISM
  5. MIRTAZAPINE (MIRTAZAPINE) [Concomitant]
  6. ESCITALOPRAM (ESCITALOPRAM) [Concomitant]
  7. THIAMAZOLE (THIAMAZOLE) [Concomitant]

REACTIONS (4)
  - Pleurothotonus [None]
  - Vomiting [None]
  - Nausea [None]
  - Off label use [None]
